FAERS Safety Report 5597553-7 (Version None)
Quarter: 2008Q1

REPORT INFORMATION
  Report Type: 
  Country: None (occurrence: None)
  Receive Date: 20080121
  Receipt Date: 20080109
  Transmission Date: 20080703
  Serious: Yes (Hospitalization)
  Sender: FDA-Public Use
  Company Number: GB-ROCHE-540566

PATIENT
  Age: 52 Year
  Sex: Female
  Weight: 83 kg

DRUGS (1)
  1. ORLISTAT [Suspect]
     Indication: OBESITY
     Route: 048
     Dates: start: 20060615, end: 20080109

REACTIONS (4)
  - CARDIOMEGALY [None]
  - FLUID RETENTION [None]
  - PLEURISY [None]
  - SMEAR CERVIX ABNORMAL [None]
